FAERS Safety Report 15786064 (Version 1)
Quarter: 2018Q4

REPORT INFORMATION
  Report Type: Spontaneous
  Country: US (occurrence: US)
  Receive Date: 20181212
  Receipt Date: 20181212
  Transmission Date: 20190205
  Serious: No
  Sender: FDA-Public Use
  Company Number: None

PATIENT
  Age: 16 Year
  Sex: Male

DRUGS (1)
  1. OTREXUP 25 MG/0.4 ML AUTO-INJ, [Suspect]
     Active Substance: METHOTREXATE
     Indication: IRIDOCYCLITIS
     Dosage: ON THE SAME DAY EACH WEEK AS DIRECTED
     Route: 058
     Dates: start: 201811

REACTIONS (3)
  - Vomiting [None]
  - Headache [None]
  - Nausea [None]
